FAERS Safety Report 15168187 (Version 1)
Quarter: 2018Q3

REPORT INFORMATION
  Report Type: Spontaneous
  Country: US (occurrence: US)
  Receive Date: 20180621
  Receipt Date: 20180621
  Transmission Date: 20181010
  Serious: Yes (Other)
  Sender: FDA-Public Use
  Company Number: None

PATIENT
  Age: 32 Year
  Sex: Female
  Weight: 95.25 kg

DRUGS (2)
  1. MIRENA [Suspect]
     Active Substance: LEVONORGESTREL
     Dates: start: 20170518, end: 20180605
  2. VITAMIN D WITH K PROBIOTIC [Concomitant]

REACTIONS (4)
  - Irritability [None]
  - Tearfulness [None]
  - Depression [None]
  - Crying [None]

NARRATIVE: CASE EVENT DATE: 20180531
